FAERS Safety Report 9157153 (Version 1)
Quarter: 2013Q1

REPORT INFORMATION
  Report Type: Spontaneous
  Country: IT (occurrence: None)
  Receive Date: 20130212
  Receipt Date: 20130212
  Transmission Date: 20140127
  Serious: Yes (Other)
  Sender: FDA-Public Use
  Company Number: AUR-APL-2013-01323

PATIENT
  Age: 27 Year
  Sex: Female

DRUGS (6)
  1. BISOPROLOL [Suspect]
     Indication: PRODUCT USED FOR UNKNOWN INDICATION
     Dosage: 1.25 MG, TOTAL, ORAL
     Route: 048
     Dates: start: 20121112, end: 20121112
  2. DELORAZEPAM (DELORAZEPAM) [Suspect]
     Indication: PRODUCT USED FOR UNKNOWN INDICATION
     Dosage: 15 DROPS / DAY
     Route: 048
     Dates: start: 20111113, end: 20121112
  3. CITALOPRAM [Suspect]
     Indication: PRODUCT USED FOR UNKNOWN INDICATION
     Route: 048
     Dates: start: 20111113, end: 20121112
  4. CLOZAPINE [Suspect]
     Indication: PRODUCT USED FOR UNKNOWN INDICATION
     Dosage: 2 DOSAGE FORMS (2 DOSAGE FORMS, 1 IN 1 D), ORAL
     Route: 048
     Dates: start: 20111113, end: 20121112
  5. FLURAZEPAM [Suspect]
     Indication: PRODUCT USED FOR UNKNOWN INDICATION
     Route: 048
     Dates: start: 20111113, end: 20121112
  6. FLUPHENAZINE DECANOATE [Suspect]
     Indication: PRODUCT USED FOR UNKNOWN INDICATION
     Route: 030
     Dates: start: 20111113, end: 20121112

REACTIONS (2)
  - Presyncope [None]
  - Syncope [None]
